FAERS Safety Report 8407028-5 (Version None)
Quarter: 2012Q2

REPORT INFORMATION
  Report Type: 
  Country: None (occurrence: None)
  Receive Date: 20120529
  Receipt Date: 20050802
  Transmission Date: 20120825
  Serious: Yes (Hospitalization, Other)
  Sender: FDA-Public Use
  Company Number: 02100-JPN-05-0394

PATIENT
  Age: 72 Year
  Sex: Male

DRUGS (5)
  1. NORVASC [Concomitant]
  2. PLETAL [Suspect]
     Indication: CEREBRAL INFARCTION
     Dosage: 100 MB, BID, ORAL
     Route: 048
     Dates: start: 20040730, end: 20050121
  3. METHYCOBAL (MECOBALAMIN) [Concomitant]
  4. ZANTAC [Concomitant]
  5. CANDESARTAN CILEXETIL [Concomitant]

REACTIONS (4)
  - SUBDURAL HAEMATOMA [None]
  - HEAD INJURY [None]
  - FALL [None]
  - CONTUSION [None]
